FAERS Safety Report 6247389-9 (Version None)
Quarter: 2009Q2

REPORT INFORMATION
  Report Type: 
  Country: None (occurrence: None)
  Receive Date: 20090626
  Receipt Date: 20090615
  Transmission Date: 20091009
  Serious: Yes (Other)
  Sender: FDA-Public Use
  Company Number: B0580599A

PATIENT
  Age: 3 Day
  Sex: Male

DRUGS (1)
  1. LAMOTRIGINE [Suspect]
     Indication: EPILEPSY

REACTIONS (9)
  - CATABOLIC STATE [None]
  - CONVULSION NEONATAL [None]
  - DRUG LEVEL DECREASED [None]
  - GRAND MAL CONVULSION [None]
  - HYPONATRAEMIA [None]
  - MATERNAL DRUGS AFFECTING FOETUS [None]
  - METABOLIC DISORDER [None]
  - MYOCLONIC EPILEPSY [None]
  - WITHDRAWAL SYNDROME [None]
